FAERS Safety Report 4879887-4 (Version None)
Quarter: 2006Q1

REPORT INFORMATION
  Report Type: 
  Country: None (occurrence: None)
  Receive Date: 20060113
  Receipt Date: 20041101
  Transmission Date: 20060701
  Serious: Yes (Death, Life-Threatening, Hospitalization, Disabling)
  Sender: FDA-Public Use
  Company Number: US-MERCK-0411USA00121

PATIENT
  Age: 73 Year
  Sex: Male
  Weight: 75 kg

DRUGS (15)
  1. VIOXX [Suspect]
     Indication: ARTHRITIS
     Route: 048
     Dates: start: 20010502, end: 20021021
  2. CARDIZEM [Concomitant]
     Route: 065
     Dates: start: 19830101, end: 20021020
  3. PROZAC [Concomitant]
     Route: 065
     Dates: start: 19990101, end: 20021020
  4. ASPIRIN [Concomitant]
     Route: 048
     Dates: start: 19840101, end: 20021020
  5. ZOCOR [Concomitant]
     Route: 048
     Dates: start: 19800101, end: 20021020
  6. HYTRIN [Concomitant]
     Route: 065
     Dates: end: 20021020
  7. TRUSOPT [Concomitant]
     Route: 047
  8. DARVOCET-N 50 [Concomitant]
     Route: 065
  9. XANAX [Concomitant]
     Route: 065
     Dates: start: 19990101, end: 20021020
  10. LOPRESSOR [Concomitant]
     Route: 065
     Dates: start: 19800101, end: 20021020
  11. FOLIC ACID [Concomitant]
     Route: 065
  12. NEXIUM [Concomitant]
     Route: 065
  13. PRILOSEC [Concomitant]
     Route: 065
  14. PREVACID [Concomitant]
     Route: 065
  15. LEVAQUIN [Concomitant]
     Route: 065

REACTIONS (7)
  - ANGIOPATHY [None]
  - CARDIAC DISORDER [None]
  - EYE DISORDER [None]
  - GASTROINTESTINAL DISORDER [None]
  - HYPERTENSION [None]
  - MYOCARDIAL INFARCTION [None]
  - RENAL DISORDER [None]
